FAERS Safety Report 23715167 (Version 1)
Quarter: 2024Q2

REPORT INFORMATION
  Report Type: Other
  Country: GB (occurrence: None)
  Receive Date: 20240407
  Receipt Date: 20240407
  Transmission Date: 20240716
  Serious: Yes (Disabling, Other)
  Sender: FDA-Public Use
  Company Number: GB-DEXPHARM-20211940

PATIENT
  Age: 35 Year
  Sex: Male
  Weight: 87 kg

DRUGS (6)
  1. LANSOPRAZOLE [Suspect]
     Active Substance: LANSOPRAZOLE
     Dosage: 15 MG
  2. MORPHINE [Concomitant]
     Active Substance: MORPHINE
     Dosage: LIQUID ORAL MORPHINE 30 MG
  3. LIDOCAINE [Concomitant]
     Active Substance: LIDOCAINE
     Dosage: 5%
  4. THYROXINE [Concomitant]
     Active Substance: LEVOTHYROXINE
  5. NITISINONE [Suspect]
     Active Substance: NITISINONE
     Indication: Alkaptonuria
     Dosage: 2 MG ALTERNATE DAYS
  6. NITISINONE [Suspect]
     Active Substance: NITISINONE
     Indication: Alkaptonuria
     Dosage: 2 MG DAILY

REACTIONS (4)
  - Primary hypothyroidism [Unknown]
  - Vitiligo [Not Recovered/Not Resolved]
  - Pruritus [Not Recovered/Not Resolved]
  - Vitamin D deficiency [Unknown]
